FAERS Safety Report 7820015-0 (Version None)
Quarter: 2011Q4

REPORT INFORMATION
  Report Type: 
  Country: None (occurrence: None)
  Receive Date: 20111018
  Receipt Date: 20111012
  Transmission Date: 20120403
  Serious: No
  Sender: FDA-Public Use
  Company Number: PHEH2011US06729

PATIENT
  Sex: Female

DRUGS (8)
  1. COMPAZINE [Concomitant]
  2. COUMADIN [Concomitant]
  3. PERCOCET [Concomitant]
  4. VALIUM [Concomitant]
  5. TASIGNA [Suspect]
     Dosage: 300 MG, BID
     Route: 048
  6. TASIGNA [Suspect]
     Dosage: UNK
  7. SINGULAIR [Concomitant]
  8. OXYMORPHONE [Concomitant]

REACTIONS (3)
  - MALAISE [None]
  - DIARRHOEA [None]
  - MUSCLE SPASMS [None]
